FAERS Safety Report 21611302 (Version 2)
Quarter: 2022Q4

REPORT INFORMATION
  Report Type: Spontaneous
  Country: JP (occurrence: JP)
  Receive Date: 20221117
  Receipt Date: 20221219
  Transmission Date: 20230113
  Serious: Yes (Death, Hospitalization)
  Sender: FDA-Public Use
  Company Number: JP-TAKEDA-2022TJP075109

PATIENT
  Age: 76 Year
  Sex: Male

DRUGS (1)
  1. ALUNBRIG [Suspect]
     Active Substance: BRIGATINIB
     Indication: Non-small cell lung cancer
     Dosage: 180 MILLIGRAM, QD
     Route: 048
     Dates: start: 20211202, end: 20220901

REACTIONS (3)
  - Decreased appetite [Unknown]
  - Cardiovascular disorder [Fatal]
  - Performance status decreased [Unknown]

NARRATIVE: CASE EVENT DATE: 20220901
